FAERS Safety Report 8074795-2 (Version None)
Quarter: 2012Q1

REPORT INFORMATION
  Report Type: 
  Country: None (occurrence: None)
  Receive Date: 20120126
  Receipt Date: 20120123
  Transmission Date: 20120608
  Serious: No
  Sender: FDA-Public Use
  Company Number: US-PFIZER INC-2012018554

PATIENT
  Sex: Female
  Weight: 77.098 kg

DRUGS (7)
  1. LIPITOR [Suspect]
     Indication: BLOOD CHOLESTEROL INCREASED
     Dosage: 20 MG, 1X/DAY
     Route: 048
     Dates: start: 20040501
  2. PROTONIX [Concomitant]
     Dosage: UNK
  3. SYNTHROID [Concomitant]
     Indication: THYROID DISORDER
     Dosage: UNK
  4. FLUOXETINE [Concomitant]
     Dosage: 25 MG, UNK
  5. ASPIRIN [Concomitant]
     Dosage: UNK
  6. ATENOLOL [Concomitant]
     Dosage: 25 MG, 1X/DAY
  7. PLAVIX [Concomitant]
     Dosage: UNK

REACTIONS (1)
  - HERPES ZOSTER [None]
